FAERS Safety Report 25898241 (Version 2)
Quarter: 2025Q4

REPORT INFORMATION
  Report Type: Report from Study
  Country: EU (occurrence: EU)
  Receive Date: 20251008
  Receipt Date: 20251011
  Transmission Date: 20260117
  Serious: Yes (Death)
  Sender: ABBVIE
  Company Number: EU-ABBVIE-6457716

PATIENT
  Age: 79 Year
  Sex: Male

DRUGS (3)
  1. FOSCARBIDOPA\FOSLEVODOPA [Suspect]
     Active Substance: FOSCARBIDOPA\FOSLEVODOPA
     Indication: Parkinson^s disease
     Dosage: CRN: 0.15ML/H; CR: 0.24ML/H; CRH: 0.26ML/H; ED: 0.1ML, ?LAST ADMIN DATE SEP 2025
     Route: 058
     Dates: start: 20250908
  2. FOSCARBIDOPA\FOSLEVODOPA [Suspect]
     Active Substance: FOSCARBIDOPA\FOSLEVODOPA
     Dosage: SD: 0.60 ML, CRN: 0.22 ML/H, CR: 0.32 ML/H, CRH: 0.34 ML/H, ED: 0.15 ML. LAST ADMIN DATE: 2025
     Route: 058
     Dates: start: 202509
  3. BENSERAZIDE HYDROCHLORIDE\LEVODOPA [Concomitant]
     Active Substance: BENSERAZIDE HYDROCHLORIDE\LEVODOPA
     Indication: Product used for unknown indication

REACTIONS (9)
  - Death [Fatal]
  - Somnolence [Unknown]
  - Disturbance in attention [Not Recovered/Not Resolved]
  - Palliative care [Not Recovered/Not Resolved]
  - Atrophy [Unknown]
  - Musculoskeletal disorder [Not Recovered/Not Resolved]
  - Akinesia [Unknown]
  - Intentional medical device removal by patient [Not Recovered/Not Resolved]
  - Motor dysfunction [Unknown]

NARRATIVE: CASE EVENT DATE: 20250901
